FAERS Safety Report 13585751 (Version 1)
Quarter: 2017Q2

REPORT INFORMATION
  Report Type: Not Available
  Country: US (occurrence: US)
  Receive Date: 20170526
  Receipt Date: 20170526
  Transmission Date: 20170830
  Serious: No
  Sender: FDA-Public Use
  Company Number: US-ANIPHARMA-2017-US-005518

PATIENT
  Age: 34 Year
  Sex: Female

DRUGS (1)
  1. FLUVOXAMINE MALEATE 50 MG [Suspect]
     Active Substance: FLUVOXAMINE MALEATE
     Dosage: 1 TABLET DAILY
     Route: 048

REACTIONS (3)
  - Anxiety [Not Recovered/Not Resolved]
  - Drug ineffective [Unknown]
  - Hyperhidrosis [Not Recovered/Not Resolved]

NARRATIVE: CASE EVENT DATE: 20170422
